FAERS Safety Report 8514168-9 (Version None)
Quarter: 2012Q3

REPORT INFORMATION
  Report Type: 
  Country: None (occurrence: None)
  Receive Date: 20120717
  Receipt Date: 20120705
  Transmission Date: 20120928
  Serious: Yes (Hospitalization, Disabling)
  Sender: FDA-Public Use
  Company Number: JP-BRISTOL-MYERS SQUIBB COMPANY-16576548

PATIENT
  Age: 73 Year
  Sex: Female

DRUGS (1)
  1. MAXIPIME [Suspect]
     Indication: FEBRILE NEUTROPENIA
     Dosage: MAXIPIME 1G 17MAR12-22MAR2012
     Route: 042
     Dates: start: 20120317, end: 20120322

REACTIONS (4)
  - DEMENTIA [None]
  - HALLUCINATION [None]
  - ALTERED STATE OF CONSCIOUSNESS [None]
  - DELIRIUM [None]
